FAERS Safety Report 9261188 (Version 1)
Quarter: 2013Q2

REPORT INFORMATION
  Report Type: Spontaneous
  Country: DE (occurrence: DE)
  Receive Date: 20130429
  Receipt Date: 20130429
  Transmission Date: 20140414
  Serious: Yes (Hospitalization)
  Sender: FDA-Public Use
  Company Number: PHHY2013DE041043

PATIENT
  Age: 46 Year
  Sex: Female

DRUGS (8)
  1. LEPONEX [Suspect]
     Dosage: UNK (12.5 - 400 MG)
     Route: 048
     Dates: start: 20120723, end: 20120815
  2. LEPONEX [Suspect]
     Dosage: 400 MG, UNK
     Route: 048
     Dates: start: 20120816, end: 20120828
  3. LEPONEX [Suspect]
     Dosage: 300 MG, UNK
     Route: 048
     Dates: start: 20120829, end: 20120830
  4. LEPONEX [Suspect]
     Dosage: 100 MG, UNK
     Route: 048
     Dates: start: 20120831, end: 20120907
  5. ASPIRIN [Concomitant]
     Dosage: 100 MG, UNK
     Route: 048
     Dates: start: 20120709
  6. HALDOL [Concomitant]
     Dosage: 4 MG, UNK
     Route: 048
     Dates: start: 20120717
  7. COTRIM FORTE [Concomitant]
     Dosage: 1920 MG, UNK
     Route: 048
     Dates: start: 20120905, end: 20120907
  8. RINGERLOESUNG [Concomitant]
     Dosage: 2000 MG, UNK
     Dates: start: 20120903, end: 20120907

REACTIONS (1)
  - Poisoning [Unknown]
